FAERS Safety Report 4631401-4 (Version None)
Quarter: 2005Q2

REPORT INFORMATION
  Report Type: 
  Country: None (occurrence: None)
  Receive Date: 20050408
  Receipt Date: 20050329
  Transmission Date: 20051028
  Serious: Yes (Other)
  Sender: FDA-Public Use
  Company Number: US014975

PATIENT
  Age: 56 Year
  Sex: Male

DRUGS (6)
  1. GABITRIL [Suspect]
     Indication: POST-TRAUMATIC STRESS DISORDER
     Dosage: 4 MG QAM ORAL
     Route: 048
     Dates: start: 20040101
  2. GABITRIL [Suspect]
     Indication: POST-TRAUMATIC STRESS DISORDER
     Dosage: 12 MG QHS ORAL
     Route: 048
  3. GABITRIL [Suspect]
     Indication: POST-TRAUMATIC STRESS DISORDER
     Dosage: 16 MG QHS ORAL
     Route: 048
  4. GABITRIL [Suspect]
     Indication: POST-TRAUMATIC STRESS DISORDER
     Dosage: 12 MG QHS ORAL
     Route: 048
  5. CLONAZEPAM [Concomitant]
  6. REMERON /SCH/ [Concomitant]

REACTIONS (1)
  - GRAND MAL CONVULSION [None]
